FAERS Safety Report 7698574-0 (Version None)
Quarter: 2011Q3

REPORT INFORMATION
  Report Type: 
  Country: None (occurrence: None)
  Receive Date: 20110818
  Receipt Date: 20110818
  Transmission Date: 20111222
  Serious: Yes (Hospitalization)
  Sender: FDA-Public Use
  Company Number: None

PATIENT
  Sex: Female
  Weight: 79.2 kg

DRUGS (1)
  1. TAXOL [Suspect]
     Dosage: 333 MG
     Dates: end: 20110810

REACTIONS (4)
  - VOMITING [None]
  - ARTHRALGIA [None]
  - NAUSEA [None]
  - CONSTIPATION [None]
